FAERS Safety Report 8299565-1 (Version None)
Quarter: 2012Q2

REPORT INFORMATION
  Report Type: 
  Country: None (occurrence: None)
  Receive Date: 20120419
  Receipt Date: 20120412
  Transmission Date: 20120825
  Serious: Yes (Hospitalization)
  Sender: FDA-Public Use
  Company Number: US-GLAXOSMITHKLINE-A0794181A

PATIENT
  Age: 69 Year
  Sex: Female
  Weight: 57.3 kg

DRUGS (8)
  1. LIPITOR [Concomitant]
  2. SYNTHROID [Concomitant]
  3. PRINZIDE [Concomitant]
  4. GLUCOPHAGE [Concomitant]
  5. CATAPRES [Concomitant]
  6. AVANDIA [Suspect]
     Indication: DIABETES MELLITUS
     Route: 048
     Dates: start: 19990910, end: 20041221
  7. DIABETA [Concomitant]
  8. METOPROLOL TARTRATE [Concomitant]

REACTIONS (4)
  - MYOCARDIAL INFARCTION [None]
  - CEREBROVASCULAR ACCIDENT [None]
  - CARDIAC FAILURE [None]
  - CORONARY ARTERY BYPASS [None]
